FAERS Safety Report 25210840 (Version 2)
Quarter: 2025Q2

REPORT INFORMATION
  Report Type: Spontaneous
  Country: US (occurrence: US)
  Receive Date: 20250417
  Receipt Date: 20250430
  Transmission Date: 20250716
  Serious: No
  Sender: PFIZER
  Company Number: US-PFIZER INC-202500075101

PATIENT
  Age: 75 Year
  Sex: Female

DRUGS (1)
  1. LEVOTHYROXINE SODIUM [Suspect]
     Active Substance: LEVOTHYROXINE SODIUM

REACTIONS (8)
  - Fatigue [Recovered/Resolved]
  - Arthritis [Unknown]
  - Tri-iodothyronine decreased [Unknown]
  - Asthenia [Unknown]
  - Dizziness [Unknown]
  - Balance disorder [Unknown]
  - Limb discomfort [Unknown]
  - Tremor [Unknown]
